FAERS Safety Report 7391779-8 (Version None)
Quarter: 2011Q2

REPORT INFORMATION
  Report Type: 
  Country: None (occurrence: None)
  Receive Date: 20110404
  Receipt Date: 20110328
  Transmission Date: 20111010
  Serious: Yes (Death, Life-Threatening, Hospitalization, Other)
  Sender: FDA-Public Use
  Company Number: US-ROCHE-764613

PATIENT
  Sex: Female
  Weight: 79.4 kg

DRUGS (3)
  1. TAXOTERE [Concomitant]
     Route: 042
     Dates: start: 20100707, end: 20101103
  2. CARBOPLATIN [Concomitant]
     Route: 042
     Dates: start: 20100707, end: 20101103
  3. AVASTIN [Suspect]
     Indication: LUNG CANCER METASTATIC
     Dosage: 03 OR 04 CYCLES
     Route: 042
     Dates: start: 20100804, end: 20101103

REACTIONS (5)
  - DEATH [None]
  - DIVERTICULUM INTESTINAL [None]
  - BILIARY CIRRHOSIS [None]
  - LARGE INTESTINE PERFORATION [None]
  - DISEASE PROGRESSION [None]
